FAERS Safety Report 4756047-9 (Version None)
Quarter: 2005Q3

REPORT INFORMATION
  Report Type: 
  Country: None (occurrence: None)
  Receive Date: 20050825
  Receipt Date: 20050426
  Transmission Date: 20060218
  Serious: Yes (Hospitalization)
  Sender: FDA-Public Use
  Company Number: WAES 0504USA04542

PATIENT
  Age: 54 Year
  Sex: Male

DRUGS (6)
  1. VYTORIN [Suspect]
     Indication: BLOOD CHOLESTEROL ABNORMAL
     Dosage: 10-20 MG/DAILY/PO
     Route: 048
     Dates: start: 20050411, end: 20050429
  2. ALLEGRA [Concomitant]
  3. EFFEXOR [Concomitant]
  4. MIRAPEX [Concomitant]
  5. RHINOCORT [Concomitant]
  6. VITAMINS (UNSPECIFIED) [Concomitant]

REACTIONS (4)
  - HYPERSENSITIVITY [None]
  - MUSCULOSKELETAL PAIN [None]
  - PAIN IN EXTREMITY [None]
  - PANCREATITIS [None]
